FAERS Safety Report 9147521 (Version 3)
Quarter: 2013Q2

REPORT INFORMATION
  Report Type: Spontaneous
  Country: IT (occurrence: IT)
  Receive Date: 20130307
  Receipt Date: 20130416
  Transmission Date: 20140414
  Serious: Yes (Hospitalization, Other)
  Sender: FDA-Public Use
  Company Number: IT-BRISTOL-MYERS SQUIBB COMPANY-17422411

PATIENT
  Age: 82 Year
  Sex: Female

DRUGS (12)
  1. COUMADIN TABS 5 MG [Suspect]
     Indication: MYOCARDIAL ISCHAEMIA
     Dosage: LAST DOSE-01JAN2013?1DF=1 UNIT?INTER FOR 3 DAYS.ON 24-DEC - ? TAB FOR 3 DAYS,1/2 TABLET FROM 20DAYS
     Route: 048
     Dates: start: 20030101, end: 20130101
  2. ARIMIDEX [Interacting]
     Indication: AXILLARY MASS
     Dosage: LAST DOSE-01JAN2013?TABS
     Route: 048
     Dates: start: 20121221
  3. EUTIROX [Concomitant]
     Dosage: TABS
  4. LASIX [Concomitant]
     Dosage: FORMULATION-LASIX 25 MG TABS
  5. NORVASC [Concomitant]
     Dosage: NORVASC 5MG TABS
  6. CARDURA [Concomitant]
     Dosage: CARDURA 4 MG TABS
  7. MINITRAN [Concomitant]
     Route: 062
  8. KARVEA [Concomitant]
     Dosage: KARVEA 300 MG TABS
  9. FOLINA [Concomitant]
     Dosage: FOLINA 5MG TABS
  10. DEURSIL [Concomitant]
     Dosage: DEURSIL 450 MG TABS
  11. PANTORC [Concomitant]
     Dosage: PANTORC 20MG TABS
  12. FERROGRAD [Concomitant]
     Dosage: FERRO GRAD FOLIC TABS

REACTIONS (9)
  - Cholestasis [Recovering/Resolving]
  - Haematuria [Recovering/Resolving]
  - Activated partial thromboplastin time prolonged [Recovering/Resolving]
  - Hypertransaminasaemia [Recovering/Resolving]
  - Hyperbilirubinaemia [Recovering/Resolving]
  - Drug interaction [Unknown]
  - Cerebrovascular accident [Unknown]
  - Infection [Unknown]
  - Thrombophlebitis [Unknown]
